FAERS Safety Report 7132988-2 (Version None)
Quarter: 2010Q4

REPORT INFORMATION
  Report Type: 
  Country: None (occurrence: None)
  Receive Date: 20101117
  Receipt Date: 20101111
  Transmission Date: 20110411
  Serious: Yes (Disabling)
  Sender: FDA-Public Use
  Company Number: ABFLP-10-0613

PATIENT
  Sex: Male
  Weight: 81.6475 kg

DRUGS (3)
  1. ABRAXANE [Suspect]
     Indication: NON-SMALL CELL LUNG CANCER
     Dates: start: 20100301, end: 20100901
  2. ALIMTA [Concomitant]
  3. ZOMETA [Concomitant]

REACTIONS (5)
  - ACTIVITIES OF DAILY LIVING IMPAIRED [None]
  - NEUROPATHY PERIPHERAL [None]
  - PERIPHERAL COLDNESS [None]
  - PERONEAL NERVE PALSY [None]
  - SENSORY LOSS [None]
